FAERS Safety Report 8898900 (Version 1)
Quarter: 2012Q4

REPORT INFORMATION
  Report Type: 
  Country: US (occurrence: US)
  Receive Date: 20121109
  Receipt Date: 20121109
  Transmission Date: 20130627
  Serious: Yes (Hospitalization)
  Sender: FDA-Public Use
  Company Number: US-PFIZER INC-2012279432

PATIENT
  Age: 79 Year
  Sex: Male
  Weight: 60.32 kg

DRUGS (6)
  1. LIPITOR [Suspect]
     Indication: HIGH CHOLESTEROL
     Dosage: 80 mg, 3x/week
     Route: 048
  2. NORVASC [Suspect]
     Indication: BLOOD PRESSURE ABNORMAL
     Dosage: 5 mg, 1x/day
     Route: 048
  3. BABY ASPIRIN [Concomitant]
     Dosage: UNK
  4. COUMADINE [Concomitant]
     Dosage: UNK
  5. DIOVANE [Concomitant]
     Dosage: UNK
  6. CARBIDOPA [Concomitant]
     Indication: PARKINSON^S DISEASE
     Dosage: UNK

REACTIONS (3)
  - Infection [Unknown]
  - Leg amputation [Unknown]
  - Drug administration error [Unknown]
